FAERS Safety Report 24783384 (Version 1)
Quarter: 2024Q4

REPORT INFORMATION
  Report Type: Spontaneous
  Country: IT (occurrence: IT)
  Receive Date: 20241227
  Receipt Date: 20241227
  Transmission Date: 20250115
  Serious: Yes (Other)
  Sender: JOHNSON AND JOHNSON
  Company Number: IT-JNJFOC-20241251425

PATIENT
  Sex: Male

DRUGS (16)
  1. IMBRUVICA [Suspect]
     Active Substance: IBRUTINIB
     Indication: Mantle cell lymphoma
     Route: 048
     Dates: start: 20240129, end: 20240314
  2. BENDAMUSTINE [Suspect]
     Active Substance: BENDAMUSTINE
     Indication: Mantle cell lymphoma
     Route: 065
     Dates: start: 20240316, end: 20240319
  3. RITUXIMAB [Suspect]
     Active Substance: RITUXIMAB
     Indication: Mantle cell lymphoma
     Route: 065
     Dates: start: 20230706, end: 20231024
  4. RITUXIMAB [Suspect]
     Active Substance: RITUXIMAB
     Dates: start: 20240115, end: 20240119
  5. RITUXIMAB [Suspect]
     Active Substance: RITUXIMAB
     Dates: start: 20240316, end: 20240319
  6. VINCRISTINE [Suspect]
     Active Substance: VINCRISTINE
     Indication: Mantle cell lymphoma
     Route: 065
     Dates: start: 20230706, end: 20231024
  7. CYCLOPHOSPHAMIDE ANHYDROUS [Suspect]
     Active Substance: CYCLOPHOSPHAMIDE ANHYDROUS
     Indication: Mantle cell lymphoma
     Route: 065
     Dates: start: 20230706, end: 20231024
  8. CYTARABINE [Suspect]
     Active Substance: CYTARABINE
     Indication: Mantle cell lymphoma
     Route: 065
     Dates: start: 20230706, end: 20231024
  9. CYTARABINE [Suspect]
     Active Substance: CYTARABINE
     Dates: start: 20240115, end: 20240119
  10. CYTARABINE [Suspect]
     Active Substance: CYTARABINE
     Dates: start: 20240316, end: 20240319
  11. DEXAMETHASONE [Suspect]
     Active Substance: DEXAMETHASONE
     Indication: Mantle cell lymphoma
     Route: 065
     Dates: start: 20230706, end: 20231024
  12. DOXORUBICIN [Suspect]
     Active Substance: DOXORUBICIN
     Indication: Mantle cell lymphoma
     Route: 065
     Dates: start: 20230706, end: 20231024
  13. METHOTREXATE [Suspect]
     Active Substance: METHOTREXATE
     Indication: Mantle cell lymphoma
     Route: 065
     Dates: start: 20240115, end: 20240119
  14. OXALIPLATIN [Suspect]
     Active Substance: OXALIPLATIN
     Indication: Mantle cell lymphoma
     Route: 065
     Dates: start: 20230706, end: 20231024
  15. PREDNISONE [Suspect]
     Active Substance: PREDNISONE
     Indication: Mantle cell lymphoma
     Route: 065
     Dates: start: 20230706, end: 20231024
  16. THIOTEPA [Suspect]
     Active Substance: THIOTEPA
     Indication: Mantle cell lymphoma
     Route: 065
     Dates: start: 20240115, end: 20240119

REACTIONS (2)
  - Mantle cell lymphoma [Unknown]
  - Drug ineffective [Unknown]
